FAERS Safety Report 5359279-4 (Version None)
Quarter: 2007Q2

REPORT INFORMATION
  Report Type: 
  Country: None (occurrence: None)
  Receive Date: 20070615
  Receipt Date: 20070612
  Transmission Date: 20071010
  Serious: Yes (Life-Threatening)
  Sender: FDA-Public Use
  Company Number: JP-BRISTOL-MYERS SQUIBB COMPANY-13814058

PATIENT
  Age: 27 Year
  Sex: Male

DRUGS (11)
  1. VIDEX EC [Suspect]
     Indication: HIV INFECTION
     Route: 048
     Dates: start: 20010404, end: 20020331
  2. VIRACEPT [Suspect]
     Indication: HIV INFECTION
     Route: 048
     Dates: start: 20050401, end: 20050916
  3. PEGINTERFERON ALFA-2B [Suspect]
  4. RIBAVIRIN [Suspect]
     Route: 048
  5. CROSS EIGHT M [Concomitant]
     Dates: start: 20050401
  6. ACECOL [Concomitant]
     Route: 048
     Dates: start: 20050401, end: 20050724
  7. PARIET [Concomitant]
     Route: 048
     Dates: start: 20050506, end: 20051124
  8. EPIVIR [Concomitant]
     Route: 048
     Dates: start: 20050906
  9. ZERIT [Concomitant]
     Route: 048
     Dates: start: 20050906
  10. KALETRA [Concomitant]
     Route: 048
     Dates: start: 20051003
  11. TRUVADA [Concomitant]
     Route: 048
     Dates: start: 20050826, end: 20050905

REACTIONS (3)
  - ACUTE HEPATIC FAILURE [None]
  - HEPATIC CIRRHOSIS [None]
  - VARICES OESOPHAGEAL [None]
